FAERS Safety Report 7145643-X (Version None)
Quarter: 2010Q4

REPORT INFORMATION
  Report Type: 
  Country: None (occurrence: None)
  Receive Date: 20101208
  Receipt Date: 20101119
  Transmission Date: 20110411
  Serious: No
  Sender: FDA-Public Use
  Company Number: US-B.I. PHARMACEUTICALS,INC./RIDGEFIELD-2010-BP-12022BP

PATIENT
  Sex: Female

DRUGS (2)
  1. COMBIVENT [Suspect]
     Indication: ASTHMA
     Route: 055
     Dates: start: 20100901, end: 20101022
  2. COMBIVENT [Suspect]
     Dosage: 24 PUF
     Route: 055
     Dates: start: 20101022

REACTIONS (1)
  - DRUG INEFFECTIVE [None]
